FAERS Safety Report 4696532-1 (Version None)
Quarter: 2005Q2

REPORT INFORMATION
  Report Type: 
  Country: None (occurrence: None)
  Receive Date: 20050621
  Receipt Date: 20050608
  Transmission Date: 20051028
  Serious: Yes (Life-Threatening, Hospitalization, Other)
  Sender: FDA-Public Use
  Company Number: DE-MERCK-0506DEU00134

PATIENT
  Age: 67 Year
  Sex: Male

DRUGS (4)
  1. PRIMAXIN [Suspect]
     Indication: BACTERIAL SEPSIS
     Route: 042
  2. VANCOMYCIN [Suspect]
     Indication: BACTERIAL SEPSIS
     Route: 065
  3. PIPERACILLIN [Suspect]
     Indication: BACTERIAL SEPSIS
     Route: 065
  4. GENTAMICIN [Suspect]
     Indication: BACTERIAL SEPSIS
     Route: 065

REACTIONS (7)
  - ACQUIRED HAEMOPHILIA [None]
  - BLADDER CANCER [None]
  - FACTOR VIII DEFICIENCY [None]
  - GALLBLADDER DISORDER [None]
  - HAEMATOMA [None]
  - HAEMOTHORAX [None]
  - PANCREATITIS [None]
